FAERS Safety Report 21055143 (Version 5)
Quarter: 2022Q3

REPORT INFORMATION
  Report Type: Report from Study
  Country: CH (occurrence: CH)
  Receive Date: 20220707
  Receipt Date: 20220812
  Transmission Date: 20221026
  Serious: Yes (Death)
  Sender: FDA-Public Use
  Company Number: CH-ABBVIE-22K-151-4459990-00

PATIENT
  Age: 85 Year
  Sex: Male

DRUGS (3)
  1. CARBIDOPA\LEVODOPA [Suspect]
     Active Substance: CARBIDOPA\LEVODOPA
     Indication: Parkinson^s disease
     Dosage: MD 3.0ML, CRD 3.0ML/H, CRN 2.0ML/H, ED 1.0ML
     Route: 050
     Dates: start: 20220629, end: 20220701
  2. CARBIDOPA\LEVODOPA [Suspect]
     Active Substance: CARBIDOPA\LEVODOPA
  3. BENSERAZIDE HYDROCHLORIDE\LEVODOPA [Concomitant]
     Active Substance: BENSERAZIDE HYDROCHLORIDE\LEVODOPA
     Indication: Parkinson^s disease
     Dosage: EVERY 2H FROM 7AM TO 7PM
     Route: 048
     Dates: start: 20220701, end: 20220706

REACTIONS (4)
  - Pulmonary embolism [Fatal]
  - Aneurysm [Fatal]
  - Myocardial infarction [Fatal]
  - Unintentional medical device removal [Unknown]

NARRATIVE: CASE EVENT DATE: 20220701
